FAERS Safety Report 15607552 (Version 7)
Quarter: 2019Q2

REPORT INFORMATION
  Report Type: Spontaneous
  Country: US (occurrence: US)
  Receive Date: 20181112
  Receipt Date: 20190624
  Transmission Date: 20190711
  Serious: Yes (Hospitalization)
  Sender: FDA-Public Use
  Company Number: US-PFIZER INC-2018427111

PATIENT
  Age: 67 Year
  Sex: Male
  Weight: 90.7 kg

DRUGS (12)
  1. LYRICA [Suspect]
     Active Substance: PREGABALIN
     Indication: PERIPHERAL NERVE LESION
     Dosage: UNK, [200 3-4 TIMES DAILY]
  2. DIAZEPAM. [Concomitant]
     Active Substance: DIAZEPAM
     Dosage: 10 MG, UNK
  3. LOSARTAN POTASSIUM. [Concomitant]
     Active Substance: LOSARTAN POTASSIUM
     Dosage: 50 MG, UNK
  4. LYRICA [Suspect]
     Active Substance: PREGABALIN
     Indication: BURNING SENSATION
     Dosage: 150 MG, UNK
  5. OXYCODONE HYDROCHLORIDE. [Concomitant]
     Active Substance: OXYCODONE HYDROCHLORIDE
     Dosage: 30 MG, UNK
  6. LYRICA [Suspect]
     Active Substance: PREGABALIN
     Indication: RESTLESS LEGS SYNDROME
     Dosage: 300 MG, 3X/DAY
     Route: 048
  7. LYRICA [Suspect]
     Active Substance: PREGABALIN
     Indication: PAIN
     Dosage: 200 MG, 3X/DAY (TAKE 1 CAPSULE 3 X DAILY)
  8. LOSARTAN AND HYDROCHLOROTHIAZIDE [Concomitant]
     Active Substance: HYDROCHLOROTHIAZIDE\LOSARTAN POTASSIUM
     Dosage: 100 MG, UNK
  9. LYRICA [Suspect]
     Active Substance: PREGABALIN
     Indication: HYPOAESTHESIA
     Dosage: UNK, 3X/DAY (150 3 TIMES A DAY RAISING TO 200 MG )
  10. LYRICA [Suspect]
     Active Substance: PREGABALIN
     Indication: PAIN IN EXTREMITY
     Dosage: 300 MG, 2X/DAY [ONE CAPSULE IN THE MORNING AND ONE AT NIGHT BEFORE BED]
     Route: 048
  11. LYRICA [Suspect]
     Active Substance: PREGABALIN
     Indication: NEUROPATHY PERIPHERAL
  12. LYRICA [Suspect]
     Active Substance: PREGABALIN
     Indication: MUSCULOSKELETAL PAIN
     Dosage: 200 MG, 3X/DAY
     Route: 048
     Dates: start: 20160108

REACTIONS (6)
  - Off label use [Unknown]
  - Product use issue [Unknown]
  - Overdose [Unknown]
  - Expired product administered [Unknown]
  - Intentional product use issue [Not Recovered/Not Resolved]
  - Therapeutic product effect incomplete [Not Recovered/Not Resolved]

NARRATIVE: CASE EVENT DATE: 201901
